FAERS Safety Report 7869809-6 (Version None)
Quarter: 2011Q4

REPORT INFORMATION
  Report Type: 
  Country: None (occurrence: None)
  Receive Date: 20111028
  Receipt Date: 20110110
  Transmission Date: 20120403
  Serious: No
  Sender: FDA-Public Use
  Company Number: US-AMGEN-USASP2010010619

PATIENT
  Age: 44 Year
  Sex: Male

DRUGS (2)
  1. ENBREL [Suspect]
     Indication: PSORIASIS
     Dosage: 50 MG, Q2WK
     Dates: start: 20101101
  2. ENBREL [Suspect]
     Dosage: 50 MG, 2 TIMES/WK
     Route: 058
     Dates: start: 20111115, end: 20111118

REACTIONS (3)
  - FATIGUE [None]
  - MALAISE [None]
  - MIGRAINE [None]
